FAERS Safety Report 7229789-3 (Version None)
Quarter: 2011Q1

REPORT INFORMATION
  Report Type: 
  Country: None (occurrence: None)
  Receive Date: 20110117
  Receipt Date: 20110113
  Transmission Date: 20110831
  Serious: Yes (Other)
  Sender: FDA-Public Use
  Company Number: BR-ABBOTT-11P-020-0697151-00

PATIENT
  Sex: Male
  Weight: 60 kg

DRUGS (3)
  1. HUMIRA [Suspect]
     Indication: CROHN'S DISEASE
     Route: 058
     Dates: start: 20100920
  2. METICORTEN [Concomitant]
     Indication: CROHN'S DISEASE
     Route: 048
     Dates: start: 20100501
  3. NEUTROFER [Concomitant]
     Indication: ANAEMIA
     Route: 048
     Dates: start: 20101101

REACTIONS (4)
  - ANAEMIA [None]
  - INTESTINAL HAEMORRHAGE [None]
  - INJECTION SITE HAEMORRHAGE [None]
  - WEIGHT INCREASED [None]
